FAERS Safety Report 12603671 (Version 1)
Quarter: 2016Q3

REPORT INFORMATION
  Report Type: Spontaneous
  Country: US (occurrence: US)
  Receive Date: 20160728
  Receipt Date: 20160728
  Transmission Date: 20161109
  Serious: Yes (Other)
  Sender: FDA-Public Use
  Company Number: US-NAPPMUNDI-USA-2016-0132465

PATIENT
  Age: 16 Year
  Sex: Female

DRUGS (2)
  1. ALCOHOL. [Suspect]
     Active Substance: ALCOHOL
     Indication: PRODUCT USED FOR UNKNOWN INDICATION
     Route: 065
  2. OXYCODONE HCL CR TABLETS (SIMILAR TO NDA 22-272) [Suspect]
     Active Substance: OXYCODONE HYDROCHLORIDE
     Indication: PRODUCT USED FOR UNKNOWN INDICATION
     Route: 048

REACTIONS (12)
  - Abasia [Unknown]
  - Foaming at mouth [Unknown]
  - Euphoric mood [Unknown]
  - Pain [Unknown]
  - Toxicity to various agents [Unknown]
  - Amnesia [Unknown]
  - Movement disorder [Unknown]
  - Vision blurred [Unknown]
  - Unevaluable event [Unknown]
  - Dysarthria [Unknown]
  - Substance abuse [Unknown]
  - Gait disturbance [Unknown]

NARRATIVE: CASE EVENT DATE: 20140903
